FAERS Safety Report 11876781 (Version 1)
Quarter: 2015Q4

REPORT INFORMATION
  Report Type: Spontaneous
  Country: US (occurrence: US)
  Receive Date: 20151229
  Receipt Date: 20151229
  Transmission Date: 20160305
  Serious: No
  Sender: FDA-Public Use
  Company Number: US-ARBOR PHARMACEUTICALS, LLC-US-2015ARB000564

PATIENT

DRUGS (2)
  1. NITROGLYCERINE [Suspect]
     Active Substance: NITROGLYCERIN
     Indication: ANGINA PECTORIS
     Dosage: [PATCH, DOSE UNKNOWN, EVERY 12 HOURS]
  2. NITROLINGUAL PUMPSPRAY [Suspect]
     Active Substance: NITROGLYCERIN
     Indication: ANGINA PECTORIS
     Dosage: [1 SPRAY UP TO 3 TIMES A DAY]
     Route: 060
     Dates: start: 20150310

REACTIONS (4)
  - Product use issue [None]
  - Medication error [Recovered/Resolved]
  - Product quality issue [Unknown]
  - Drug ineffective [Recovered/Resolved]

NARRATIVE: CASE EVENT DATE: 20150310
